FAERS Safety Report 18565575 (Version 1)
Quarter: 2020Q4

REPORT INFORMATION
  Report Type: Spontaneous
  Country: US (occurrence: US)
  Receive Date: 20201201
  Receipt Date: 20201201
  Transmission Date: 20210114
  Serious: No
  Sender: FDA-Public Use
  Company Number: US-PFIZER INC-2020471010

PATIENT
  Age: 75 Year
  Sex: Male
  Weight: 86.18 kg

DRUGS (1)
  1. LIPITOR [Suspect]
     Active Substance: ATORVASTATIN CALCIUM
     Indication: BLOOD CHOLESTEROL INCREASED
     Dosage: 20 MG, 1X/DAY (20MG DAILY BY MOUTH BEFORE BED AT NIGHT)
     Route: 048

REACTIONS (1)
  - Mobility decreased [Unknown]
